FAERS Safety Report 10237439 (Version 1)
Quarter: 2014Q2

REPORT INFORMATION
  Report Type: Spontaneous
  Country: US (occurrence: US)
  Receive Date: 20140615
  Receipt Date: 20140615
  Transmission Date: 20141212
  Serious: No
  Sender: FDA-Public Use
  Company Number: US-009507513-1406USA000719

PATIENT
  Age: 82 Year
  Sex: Male

DRUGS (1)
  1. DULERA [Suspect]
     Dosage: UNK
     Route: 055

REACTIONS (1)
  - Rash [Recovered/Resolved]
